FAERS Safety Report 7852943-4 (Version None)
Quarter: 2011Q4

REPORT INFORMATION
  Report Type: 
  Country: None (occurrence: None)
  Receive Date: 20111026
  Receipt Date: 20111002
  Transmission Date: 20120403
  Serious: No
  Sender: FDA-Public Use
  Company Number: US-BAYER-2011-095485

PATIENT
  Age: 25 Year
  Sex: Male
  Weight: 136.5 kg

DRUGS (1)
  1. ALEVE (CAPLET) [Suspect]
     Dosage: TOOK 15 TO 20 ALEVE, BOTTLE COUNT 50S
     Route: 048
     Dates: start: 20111002

REACTIONS (1)
  - NO ADVERSE EVENT [None]
